FAERS Safety Report 10472702 (Version 1)
Quarter: 2014Q3

REPORT INFORMATION
  Report Type: Spontaneous
  Country: US (occurrence: None)
  Receive Date: 20140923
  Receipt Date: 20140923
  Transmission Date: 20150326
  Serious: No
  Sender: FDA-Public Use
  Company Number: None

PATIENT
  Age: 83 Year
  Sex: Female

DRUGS (1)
  1. OTEZLA [Suspect]
     Active Substance: APREMILAST
     Indication: PSORIATIC ARTHROPATHY
     Route: 048
     Dates: start: 20140610, end: 20140918

REACTIONS (5)
  - Chills [None]
  - Body temperature increased [None]
  - Pruritus [None]
  - Rash generalised [None]
  - Rectal haemorrhage [None]

NARRATIVE: CASE EVENT DATE: 20140918
